FAERS Safety Report 6120904-1 (Version None)
Quarter: 2009Q1

REPORT INFORMATION
  Report Type: 
  Country: None (occurrence: None)
  Receive Date: 20090317
  Receipt Date: 20090312
  Transmission Date: 20090719
  Serious: Yes (Other)
  Sender: FDA-Public Use
  Company Number: US-ASTRAZENECA-2009UW06487

PATIENT
  Age: 90 Year
  Sex: Female
  Weight: 62.6 kg

DRUGS (4)
  1. NEXIUM [Suspect]
     Route: 048
  2. DIGOXIN [Concomitant]
  3. SOTALOL [Concomitant]
  4. WARFARIN SODIUM [Concomitant]

REACTIONS (1)
  - CEREBROVASCULAR ACCIDENT [None]
